FAERS Safety Report 8038231-4 (Version None)
Quarter: 2012Q1

REPORT INFORMATION
  Report Type: 
  Country: None (occurrence: None)
  Receive Date: 20120111
  Receipt Date: 20111208
  Transmission Date: 20120608
  Serious: No
  Sender: FDA-Public Use
  Company Number: US-AMGEN-USASP2011052006

PATIENT
  Age: 75 Year
  Sex: Female
  Weight: 82.993 kg

DRUGS (5)
  1. ATENOLOL [Concomitant]
     Indication: HYPERTENSION
     Dosage: 25 MG, QD
     Route: 048
     Dates: start: 20111121
  2. ESOMEPRAZOLE MAGNESIUM [Concomitant]
     Indication: GOUT
     Dosage: 40 MG, QD
     Route: 048
     Dates: start: 20100702
  3. PILOCARPINE HCL [Concomitant]
     Dosage: 5 MG, TID
     Route: 048
  4. ENBREL [Suspect]
     Indication: RHEUMATOID ARTHRITIS
     Dosage: 50 MG, QWK
     Dates: start: 20100809, end: 20110914
  5. PILOCARPINE HCL [Concomitant]
     Indication: DRY MOUTH
     Dosage: 5 MG, BID
     Route: 048
     Dates: start: 20110208

REACTIONS (3)
  - INJECTION SITE PAIN [None]
  - URINARY TRACT INFECTION [None]
  - HYPOTENSION [None]
